FAERS Safety Report 5744484-5 (Version None)
Quarter: 2008Q2

REPORT INFORMATION
  Report Type: 
  Country: None (occurrence: None)
  Receive Date: 20080520
  Receipt Date: 20080514
  Transmission Date: 20081010
  Serious: Yes (Other)
  Sender: FDA-Public Use
  Company Number: JP-ASTRAZENECA-2008AP01428

PATIENT
  Age: 76 Year
  Sex: Female
  Weight: 47 kg

DRUGS (14)
  1. DIPRIVAN [Suspect]
     Indication: NEPHROURETERECTOMY
     Route: 042
     Dates: start: 20080116, end: 20080116
  2. ULTIVA [Suspect]
     Indication: NEPHROURETERECTOMY
     Route: 042
     Dates: start: 20080116, end: 20080116
  3. FENTANYL [Suspect]
     Indication: NEPHROURETERECTOMY
     Dosage: 2 ML X5
     Route: 042
     Dates: start: 20080116, end: 20080116
  4. MUSCULAX [Concomitant]
     Route: 042
  5. ANAPEINE INJECTION [Concomitant]
     Dosage: DOSE UNKNOWN
     Route: 065
  6. ATROPINE SULFATE [Concomitant]
     Route: 065
  7. VAGOSTIGMIN [Concomitant]
     Route: 065
  8. EFFORTIL [Concomitant]
     Dosage: DOSE UNKNOWN
     Route: 065
  9. NOVOLIN R [Concomitant]
     Dosage: DOSE UNKNOWN
     Route: 065
  10. PENTCILLIN [Concomitant]
     Dosage: DOSE UNKNOWN
     Route: 042
  11. CATABON [Concomitant]
     Dosage: DOSE UNKNOWN
     Route: 065
  12. DROLEPTAN [Concomitant]
     Dosage: DOSE UNKNOWN
     Route: 065
  13. NOVO HEPARIN [Concomitant]
     Dosage: DOSE UNKNOWN
     Route: 065
  14. OXYGEN FOR MEDICAL USE [Concomitant]
     Dosage: DOSE UNKNOWN
     Route: 055

REACTIONS (2)
  - DELAYED RECOVERY FROM ANAESTHESIA [None]
  - EYELID OEDEMA [None]
